FAERS Safety Report 5962299-X (Version None)
Quarter: 2008Q4

REPORT INFORMATION
  Report Type: 
  Country: None (occurrence: None)
  Receive Date: 20081121
  Receipt Date: 20081113
  Transmission Date: 20090506
  Serious: Yes (Hospitalization, Other)
  Sender: FDA-Public Use
  Company Number: PHHO2007MX04028

PATIENT
  Sex: Male

DRUGS (2)
  1. DIOVAN HCT [Suspect]
     Indication: HYPERTENSION
     Dosage: 160/25MG, QD
     Route: 048
     Dates: start: 20070101, end: 20070101
  2. ADALAT [Concomitant]

REACTIONS (5)
  - DIABETES MELLITUS [None]
  - DIALYSIS [None]
  - FOOT AMPUTATION [None]
  - PRURITUS [None]
  - VOMITING [None]
